FAERS Safety Report 7406217-6 (Version None)
Quarter: 2011Q2

REPORT INFORMATION
  Report Type: 
  Country: None (occurrence: None)
  Receive Date: 20110411
  Receipt Date: 20110331
  Transmission Date: 20111010
  Serious: Yes (Other)
  Sender: FDA-Public Use
  Company Number: JP-JNJFOC-20110402506

PATIENT
  Age: 7 Decade
  Sex: Male

DRUGS (2)
  1. RISPERDAL [Suspect]
     Indication: PRODUCT USED FOR UNKNOWN INDICATION
     Route: 048
  2. BIPERIDEN HYDROCHLORIDE TAB [Concomitant]
     Indication: PROPHYLAXIS
     Dosage: 2 DF, ONE PER ONE DAY
     Route: 048

REACTIONS (3)
  - DYSARTHRIA [None]
  - NORMAL TENSION GLAUCOMA [None]
  - CATARACT [None]
